FAERS Safety Report 8459127-X (Version None)
Quarter: 2012Q2

REPORT INFORMATION
  Report Type: 
  Country: None (occurrence: None)
  Receive Date: 20120622
  Receipt Date: 20120616
  Transmission Date: 20120825
  Serious: Yes (Death)
  Sender: FDA-Public Use
  Company Number: GB-CELGENEUS-167-FK228-12052517

PATIENT
  Sex: Male

DRUGS (2)
  1. ROMIDEPSIN [Suspect]
     Indication: PERIPHERAL T-CELL LYMPHOMA UNSPECIFIED
     Route: 065
  2. PLATELETS [Concomitant]
     Indication: THROMBOCYTOPENIA
     Route: 041

REACTIONS (5)
  - PLATELET COUNT DECREASED [None]
  - GASTROINTESTINAL HAEMORRHAGE [None]
  - PERIPHERAL T-CELL LYMPHOMA UNSPECIFIED [None]
  - BLOOD UREA INCREASED [None]
  - BLOOD CREATININE INCREASED [None]
